FAERS Safety Report 7927778-4 (Version None)
Quarter: 2011Q4

REPORT INFORMATION
  Report Type: 
  Country: None (occurrence: None)
  Receive Date: 20111118
  Receipt Date: 20111116
  Transmission Date: 20120403
  Serious: Yes (Death, Hospitalization)
  Sender: FDA-Public Use
  Company Number: CO-UCBSA-045751

PATIENT
  Age: 69 Year
  Weight: 68 kg

DRUGS (2)
  1. CERTOLIZUMAB PEGOL [Suspect]
     Indication: RHEUMATOID ARTHRITIS
     Dosage: NO OF DOSES RECEIVED:2
     Route: 058
     Dates: start: 20110727, end: 20111011
  2. LANDACORT [Concomitant]
     Route: 048
     Dates: start: 20111011, end: 20110101

REACTIONS (1)
  - PNEUMONIA [None]
